FAERS Safety Report 16613910 (Version 1)
Quarter: 2019Q3

REPORT INFORMATION
  Report Type: Spontaneous
  Country: US (occurrence: US)
  Receive Date: 20190723
  Receipt Date: 20190723
  Transmission Date: 20191004
  Serious: Yes (Death, Other)
  Sender: FDA-Public Use
  Company Number: US-CELLTRION INC.-2019US023059

PATIENT

DRUGS (3)
  1. PREDNISONE. [Suspect]
     Active Substance: PREDNISONE
     Indication: POLYCHONDRITIS
  2. INFLIXIMAB (UNKNOWN) [Suspect]
     Active Substance: INFLIXIMAB
     Indication: POLYCHONDRITIS
  3. ETANERCEPT [Suspect]
     Active Substance: ETANERCEPT
     Indication: POLYCHONDRITIS

REACTIONS (6)
  - Histoplasmosis [Unknown]
  - Cardiac failure [Unknown]
  - Arthralgia [Unknown]
  - Death [Fatal]
  - Off label use [Unknown]
  - Endocarditis [Unknown]
